FAERS Safety Report 12554129 (Version 2)
Quarter: 2016Q3

REPORT INFORMATION
  Report Type: Spontaneous
  Country: JP (occurrence: JP)
  Receive Date: 20160713
  Receipt Date: 20160803
  Transmission Date: 20161109
  Serious: Yes (Other)
  Sender: FDA-Public Use
  Company Number: JP-PFIZER INC-2016337670

PATIENT
  Age: 69 Year
  Sex: Female

DRUGS (21)
  1. CELECOX [Suspect]
     Active Substance: CELECOXIB
     Dosage: 400 MG, 1X/DAY
     Route: 048
     Dates: start: 2013
  2. LYRICA [Concomitant]
     Active Substance: PREGABALIN
     Dosage: 25 MG, ONCE DAILY, AFTER DINNER
     Route: 048
  3. CALTAN [Concomitant]
     Active Substance: CALCIUM CARBONATE
     Dosage: UNK UNK, UNKNOWN FREQ
  4. ASTOMIN [Concomitant]
     Active Substance: DIMEMORFAN
     Dosage: UNK UNK, UNKNOWN FREQ
  5. SHAKUYAKUKANZOTO [Concomitant]
     Active Substance: HERBALS
     Dosage: UNK UNK, UNKNOWN FREQ
  6. ALOSENN [Concomitant]
     Active Substance: SENNA LEAF
     Dosage: UNK UNK, UNKNOWN FREQ
  7. LOXOPROFEN SODIUM [Concomitant]
     Active Substance: LOXOPROFEN SODIUM
     Indication: ANALGESIC THERAPY
     Dosage: UNK, AS NEEDED
     Route: 048
  8. CARBOCISTEINE [Concomitant]
     Active Substance: CARBOCYSTEINE
     Dosage: UNK UNK, UNKNOWN FREQ
  9. MONILAC [Concomitant]
     Active Substance: LACTULOSE
     Dosage: UNK UNK, UNKNOWN FREQ
  10. GRAMALIL [Concomitant]
     Active Substance: TIAPRIDE HYDROCHLORIDE
     Dosage: UNK UNK, UNKNOWN FREQ
  11. MOSAPRIDE [Concomitant]
     Active Substance: MOSAPRIDE
     Dosage: UNK UNK, UNKNOWN FREQ
  12. BAYASPIRIN [Concomitant]
     Active Substance: ASPIRIN
     Dosage: UNK UNK, UNKNOWN FREQ
  13. FRANDOL [Concomitant]
     Active Substance: ISOSORBIDE DINITRATE
     Dosage: 40 MG, UNK
     Route: 062
  14. LANSOPRAZOLE. [Concomitant]
     Active Substance: LANSOPRAZOLE
     Dosage: UNK UNK, UNKNOWN FREQ
  15. PLAVIX [Concomitant]
     Active Substance: CLOPIDOGREL BISULFATE
     Dosage: UNK UNK, UNKNOWN FREQ
  16. SHIGMABITAN [Concomitant]
     Dosage: UNK UNK, UNKNOWN FREQ
  17. PLETAL [Concomitant]
     Active Substance: CILOSTAZOL
     Dosage: UNK UNK, UNKNOWN FREQ
  18. LIMAPROST [Concomitant]
     Active Substance: LIMAPROST
     Dosage: UNK UNK, UNKNOWN FREQ
  19. AMLODIN [Concomitant]
     Active Substance: AMLODIPINE BESYLATE
     Dosage: UNK UNK, UNKNOWN FREQ
  20. TELEMIN SOFT [Concomitant]
     Dosage: UNK UNK, UNKNOWN FREQ
  21. LIVOSTIN [Concomitant]
     Active Substance: LEVOCABASTINE HYDROCHLORIDE
     Dosage: UNK UNK, UNKNOWN FREQ

REACTIONS (4)
  - Intentional product misuse [Unknown]
  - Somnolence [Unknown]
  - Condition aggravated [Unknown]
  - Dementia with Lewy bodies [Unknown]

NARRATIVE: CASE EVENT DATE: 2013
